FAERS Safety Report 23638155 (Version 1)
Quarter: 2024Q1

REPORT INFORMATION
  Report Type: Spontaneous
  Country: FI (occurrence: FI)
  Receive Date: 20240315
  Receipt Date: 20240315
  Transmission Date: 20240410
  Serious: Yes (Hospitalization)
  Sender: FDA-Public Use
  Company Number: None

PATIENT
  Age: 48 Year
  Sex: Female

DRUGS (8)
  1. PACLITAXEL [Suspect]
     Active Substance: PACLITAXEL
     Indication: Invasive ductal breast carcinoma
     Dosage: 90 MG, 3RD DOSE (FIRST 31.5.2023)?ROUTE: INTRAVENOUS
     Route: 042
     Dates: start: 20230626
  2. PACLITAXEL [Suspect]
     Active Substance: PACLITAXEL
     Dosage: 90 MG, 4TH DOSE (FIRST 31.5.2023)?ROUTE: INTRAVENOUS
     Route: 042
     Dates: start: 20230703
  3. OXYCODONE HYDROCHLORIDE [Suspect]
     Active Substance: OXYCODONE HYDROCHLORIDE
     Indication: Pain
     Dosage: 5 MG?ROA: INTRAVENOUS
     Dates: start: 20230626
  4. CETIRIZINE HYDROCHLORIDE [Concomitant]
     Active Substance: CETIRIZINE HYDROCHLORIDE
     Indication: Chemotherapy side effect prophylaxis
     Dosage: 10 MG?ROA: ORAL
     Dates: start: 20230626
  5. PEPCID [Concomitant]
     Active Substance: FAMOTIDINE
     Indication: Chemotherapy side effect prophylaxis
     Dosage: 10 MG?ROA: ORAL
     Dates: start: 20230626
  6. DEXAMETASON ABCUR [Concomitant]
     Indication: Chemotherapy side effect prophylaxis
     Dosage: 12 MG?ROA: ORAL
     Dates: start: 20230626
  7. DIURAMIN [Concomitant]
     Indication: Hypercalciuria
     Dosage: 1 TABLET X 1?ROA: ORAL
     Dates: start: 20150914
  8. POTASSIUM CHLORIDE [Concomitant]
     Active Substance: POTASSIUM CHLORIDE
     Indication: Hypokalaemia
     Dosage: 750 MG X 1?ROA: ORAL
     Dates: start: 20230427

REACTIONS (7)
  - Dyspnoea [Recovered/Resolved]
  - Erythema [Recovered/Resolved]
  - Feeling hot [Recovered/Resolved]
  - Back pain [Recovered/Resolved]
  - Infusion related reaction [Recovered/Resolved]
  - Vomiting [Recovered/Resolved]
  - Malaise [Recovered/Resolved]

NARRATIVE: CASE EVENT DATE: 20230626
